FAERS Safety Report 10479157 (Version 1)
Quarter: 2014Q3

REPORT INFORMATION
  Report Type: Report from Study
  Country: BR (occurrence: BR)
  Receive Date: 20140926
  Receipt Date: 20140926
  Transmission Date: 20150326
  Serious: Yes (Life-Threatening, Hospitalization, Other)
  Sender: FDA-Public Use
  Company Number: PHHY2014BR126158

PATIENT
  Sex: Female
  Weight: 73 kg

DRUGS (9)
  1. DIOVAN [Suspect]
     Active Substance: VALSARTAN
     Indication: HYPERTENSION
     Dosage: 1 DF(160MG), BID
  2. OMEPRAZOLE. [Concomitant]
     Active Substance: OMEPRAZOLE
     Indication: GASTRIC DISORDER
  3. TANDRILAX [Concomitant]
     Indication: PAIN
     Dosage: UNK, PRN (WHEN SHE FELT PAIN)
  4. RIVOTRIL [Concomitant]
     Active Substance: CLONAZEPAM
     Indication: SLEEP DISORDER
  5. VERTIX//FLUNARIZINE DIHYDROCHLORIDE [Concomitant]
     Indication: LABYRINTHITIS
     Dosage: 10 MG, UNK
  6. NATRILIX [Concomitant]
     Active Substance: INDAPAMIDE
     Dosage: 1.5 MG, UNK
  7. CAFFEINE W/CARISOPRODOL/PARACETAMOL [Concomitant]
     Indication: ARTHRALGIA
  8. PANTOPRAZOLE [Concomitant]
     Active Substance: PANTOPRAZOLE SODIUM
  9. MAGNEMIN [Concomitant]
     Indication: MUSCLE SPASMS
     Dosage: 1 MG, UNK

REACTIONS (11)
  - Intestinal perforation [Not Recovered/Not Resolved]
  - Mental disorder [Not Recovered/Not Resolved]
  - Bacterial infection [Not Recovered/Not Resolved]
  - Haematemesis [Not Recovered/Not Resolved]
  - Gait disturbance [Not Recovered/Not Resolved]
  - Weight decreased [Unknown]
  - Diverticulitis [Not Recovered/Not Resolved]
  - Hyperphagia [Not Recovered/Not Resolved]
  - Coma [Not Recovered/Not Resolved]
  - Gastrointestinal haemorrhage [Not Recovered/Not Resolved]
  - Diarrhoea [Not Recovered/Not Resolved]
